FAERS Safety Report 9426873 (Version 1)
Quarter: 2013Q3

REPORT INFORMATION
  Report Type: Spontaneous
  Country: US (occurrence: US)
  Receive Date: 20130730
  Receipt Date: 20130730
  Transmission Date: 20140515
  Serious: No
  Sender: FDA-Public Use
  Company Number: US-SANOFI-AVENTIS-2013SA025063

PATIENT
  Age: 38 Year
  Sex: Male

DRUGS (3)
  1. ZOLPIDEM TARTRATE EXTENDED RELEASE - WINTHROP [Suspect]
  2. AMBIEN CR [Suspect]
  3. TADALAFIL [Concomitant]

REACTIONS (3)
  - Lacrimation increased [Unknown]
  - Extra dose administered [Unknown]
  - Therapeutic response decreased [Unknown]
